FAERS Safety Report 7597648-2 (Version None)
Quarter: 2011Q3

REPORT INFORMATION
  Report Type: 
  Country: None (occurrence: None)
  Receive Date: 20110708
  Receipt Date: 20110704
  Transmission Date: 20111222
  Serious: Yes (Death)
  Sender: FDA-Public Use
  Company Number: DE-B.I. PHARMACEUTICALS,INC./RIDGEFIELD-2011-DE-03859DE

PATIENT
  Age: 52 Year
  Sex: Male
  Weight: 100 kg

DRUGS (5)
  1. INSULIN [Concomitant]
     Indication: TYPE 2 DIABETES MELLITUS
  2. CARDIACA [Concomitant]
  3. ANALGESICS [Concomitant]
  4. CHEMOTHERAPEUTICS [Concomitant]
  5. TWYNSTA [Suspect]
     Indication: HYPERTENSION
     Dosage: 1 ANZ

REACTIONS (1)
  - PANCREATIC CARCINOMA [None]
